FAERS Safety Report 7042484-9 (Version None)
Quarter: 2010Q4

REPORT INFORMATION
  Report Type: 
  Country: None (occurrence: None)
  Receive Date: 20101013
  Receipt Date: 20100301
  Transmission Date: 20110411
  Serious: No
  Sender: FDA-Public Use
  Company Number: US-ASTRAZENECA-2010SE02115

PATIENT
  Age: 76 Year
  Sex: Male
  Weight: 79.4 kg

DRUGS (10)
  1. SYMBICORT [Suspect]
     Indication: ASTHMA
     Dosage: 160/4.5 UG TWO TIMES A DAY
     Route: 055
  2. FOSAMAX [Concomitant]
  3. METFORMIN [Concomitant]
  4. NASACORT [Concomitant]
  5. OMEPRAZOLE [Concomitant]
  6. PREDNISONE [Concomitant]
  7. SPIRIVA [Concomitant]
  8. THEOPHYLLINE [Concomitant]
  9. XOPONEX [Concomitant]
  10. PROVENTIL [Concomitant]

REACTIONS (3)
  - DEVICE FAILURE [None]
  - DYSPNOEA [None]
  - PULMONARY CONGESTION [None]
